FAERS Safety Report 4506540-9 (Version None)
Quarter: 2004Q4

REPORT INFORMATION
  Report Type: 
  Country: None (occurrence: None)
  Receive Date: 20041122
  Receipt Date: 20041005
  Transmission Date: 20050328
  Serious: Yes (Death, Other)
  Sender: FDA-Public Use
  Company Number: GB-BRISTOL-MYERS SQUIBB COMPANY-12722914

PATIENT
  Age: 49 Year
  Sex: Male
  Weight: 83 kg

DRUGS (9)
  1. ABILIFY [Suspect]
     Indication: SCHIZOPHRENIA
     Route: 048
     Dates: start: 20040921, end: 20040929
  2. RAMIPRIL [Concomitant]
     Indication: CARDIAC DISORDER
     Route: 048
  3. LIPITOR [Concomitant]
     Indication: CARDIAC DISORDER
     Route: 048
  4. SPIRONOLACTONE [Concomitant]
     Indication: CARDIAC DISORDER
     Route: 048
  5. OMEGA-3 [Concomitant]
     Indication: CARDIAC DISORDER
     Route: 048
  6. ASPIRIN [Concomitant]
     Indication: CARDIAC DISORDER
     Route: 048
  7. IKOREL [Concomitant]
     Indication: CARDIAC DISORDER
     Route: 048
  8. ELANTAN [Concomitant]
     Indication: CARDIAC DISORDER
     Route: 048
  9. LORAZEPAM [Concomitant]
     Route: 048
     Dates: start: 20040921

REACTIONS (6)
  - CYANOSIS [None]
  - GRAND MAL CONVULSION [None]
  - MYOCARDIAL INFARCTION [None]
  - PULSE ABSENT [None]
  - TREATMENT NONCOMPLIANCE [None]
  - URINARY INCONTINENCE [None]
